FAERS Safety Report 9774655 (Version 3)
Quarter: 2014Q2

REPORT INFORMATION
  Report Type: Not Available
  Country: JP (occurrence: JP)
  Receive Date: 20131220
  Receipt Date: 20140403
  Transmission Date: 20141212
  Serious: Yes (Hospitalization)
  Sender: FDA-Public Use
  Company Number: JP-ASTELLAS-2013JP013981

PATIENT
  Age: 62 Year
  Sex: Male
  Weight: 70.1 kg

DRUGS (7)
  1. BETANIS [Suspect]
     Indication: POLLAKIURIA
     Dosage: 50 MG, UID/QD
     Route: 048
     Dates: start: 20130422, end: 20130427
  2. BETANIS [Suspect]
     Indication: HYPERTONIC BLADDER
  3. BEPRICOR [Concomitant]
     Indication: ATRIAL FIBRILLATION
     Dosage: 50 MG, BID
     Route: 048
     Dates: end: 20130427
  4. FLIVAS [Concomitant]
     Indication: POLLAKIURIA
     Dosage: 25 MG, BID
     Route: 048
     Dates: start: 20130211
  5. FLIVAS [Concomitant]
     Indication: BENIGN PROSTATIC HYPERPLASIA
  6. AMLODIPINE                         /00972402/ [Concomitant]
     Indication: HYPERTENSION
     Dosage: 5 MG, UID/QD
     Route: 048
  7. LIPIDIL [Concomitant]
     Indication: HYPERLIPIDAEMIA
     Dosage: 53.3 MG, BID
     Route: 048

REACTIONS (3)
  - Loss of consciousness [Recovered/Resolved]
  - Arrhythmia [Recovered/Resolved]
  - Loss of consciousness [Unknown]
